FAERS Safety Report 18914669 (Version 1)
Quarter: 2021Q1

REPORT INFORMATION
  Report Type: Report from Study
  Country: US (occurrence: US)
  Receive Date: 20210219
  Receipt Date: 20210219
  Transmission Date: 20210420
  Serious: Yes (Other)
  Sender: FDA-Public Use
  Company Number: US-ASTRAZENECA-2021A060129

PATIENT
  Sex: Female

DRUGS (1)
  1. LYNPARZA [Suspect]
     Active Substance: OLAPARIB
     Indication: OVARIAN CANCER
     Route: 048

REACTIONS (8)
  - Haemoglobin decreased [Unknown]
  - Product dose omission issue [Unknown]
  - Vitamin B12 deficiency [Unknown]
  - Vitamin B12 abnormal [Unknown]
  - Fatigue [Unknown]
  - Alopecia [Unknown]
  - Carbohydrate antigen 125 increased [Unknown]
  - Urinary tract infection [Unknown]
